FAERS Safety Report 6177144-X (Version None)
Quarter: 2009Q2

REPORT INFORMATION
  Report Type: 
  Country: None (occurrence: None)
  Receive Date: 20090504
  Receipt Date: 20090430
  Transmission Date: 20091009
  Serious: Yes (Hospitalization, Disabling)
  Sender: FDA-Public Use
  Company Number: GB-PFIZER INC-2007060106

PATIENT

DRUGS (6)
  1. VORICONAZOLE [Suspect]
     Indication: FUNGAL INFECTION
     Dosage: 200 MG, 2X/DAY
     Route: 048
     Dates: start: 20070601, end: 20070621
  2. FOSCARNET [Concomitant]
     Dates: start: 20070706
  3. CYCLOSPORINE [Concomitant]
     Dates: start: 20070630
  4. CYCLIZINE [Concomitant]
     Dates: start: 20070528
  5. HEPARIN [Concomitant]
     Dates: start: 20070524
  6. DIHYDROCODEINE BITARTRATE INJ [Concomitant]

REACTIONS (4)
  - DYSPHASIA [None]
  - HEADACHE [None]
  - HEMIPARESIS [None]
  - SUBDURAL HAEMATOMA [None]
